FAERS Safety Report 25256851 (Version 1)
Quarter: 2025Q2

REPORT INFORMATION
  Report Type: Spontaneous
  Country: PL (occurrence: PL)
  Receive Date: 20250430
  Receipt Date: 20250430
  Transmission Date: 20250716
  Serious: Yes (Other)
  Sender: JOHNSON AND JOHNSON
  Company Number: PL-JNJFOC-20250437551

PATIENT
  Age: 7 Decade
  Sex: Male

DRUGS (4)
  1. TALVEY [Suspect]
     Active Substance: TALQUETAMAB-TGVS
     Indication: Plasma cell myeloma
     Route: 065
     Dates: start: 20240819
  2. TALVEY [Suspect]
     Active Substance: TALQUETAMAB-TGVS
     Route: 065
     Dates: start: 20240821
  3. TALVEY [Suspect]
     Active Substance: TALQUETAMAB-TGVS
     Route: 065
     Dates: start: 20240823
  4. TALVEY [Suspect]
     Active Substance: TALQUETAMAB-TGVS
     Route: 065
     Dates: start: 20240918

REACTIONS (11)
  - Immune effector cell-associated neurotoxicity syndrome [Recovered/Resolved]
  - Cytokine release syndrome [Unknown]
  - Urticaria [Unknown]
  - Hypotonia [Unknown]
  - COVID-19 [Unknown]
  - Coagulopathy [Unknown]
  - Dry mouth [Unknown]
  - Dry eye [Unknown]
  - Weight decreased [Unknown]
  - Nail dystrophy [Unknown]
  - Infection [Unknown]

NARRATIVE: CASE EVENT DATE: 20240820
